FAERS Safety Report 23781312 (Version 1)
Quarter: 2024Q2

REPORT INFORMATION
  Report Type: Spontaneous
  Country: US (occurrence: None)
  Receive Date: 20240425
  Receipt Date: 20240425
  Transmission Date: 20240716
  Serious: Yes (Other)
  Sender: FDA-Public Use
  Company Number: 2024A093012

PATIENT
  Age: 15155 Day
  Sex: Female

DRUGS (1)
  1. LYNPARZA [Suspect]
     Active Substance: OLAPARIB
     Route: 048

REACTIONS (5)
  - Ear swelling [Unknown]
  - Mouth swelling [Unknown]
  - Paraesthesia [Unknown]
  - Food interaction [Unknown]
  - Erythema [Unknown]

NARRATIVE: CASE EVENT DATE: 20240416
